FAERS Safety Report 4713099-X (Version None)
Quarter: 2005Q3

REPORT INFORMATION
  Report Type: 
  Country: None (occurrence: None)
  Receive Date: 20050712
  Receipt Date: 20050712
  Transmission Date: 20060218
  Serious: Yes (Hospitalization)
  Sender: FDA-Public Use
  Company Number: None

PATIENT
  Age: 86 Year
  Sex: Male
  Weight: 64.9 kg

DRUGS (16)
  1. GATIFLOXACIN [Suspect]
     Indication: URINARY TRACT INFECTION
     Dosage: 200 MG , 200 MG DA, ORAL
     Route: 048
     Dates: start: 20050329, end: 20050404
  2. VITAMIN E [Concomitant]
  3. FUROSEMIDE [Concomitant]
  4. LISINOPRIL [Concomitant]
  5. ATENOLOL [Concomitant]
  6. OMEPRAZOLE [Concomitant]
  7. FOLIC ACID [Concomitant]
  8. DILANTIN [Concomitant]
  9. GATIFLOXACIN [Concomitant]
  10. ISOSORBIDE MONONITRATE [Concomitant]
  11. LANOXIN [Concomitant]
  12. ASPIRIN [Concomitant]
  13. IPRATROPIUM BROMIDE [Concomitant]
  14. . [Concomitant]
  15. NITROGLYCERIN [Concomitant]
  16. DOCUSATE NA [Concomitant]

REACTIONS (1)
  - CLOSTRIDIUM COLITIS [None]
